FAERS Safety Report 5504376-3 (Version None)
Quarter: 2007Q4

REPORT INFORMATION
  Report Type: 
  Country: None (occurrence: None)
  Receive Date: 20071101
  Receipt Date: 20071022
  Transmission Date: 20080405
  Serious: Yes (Hospitalization, Other)
  Sender: FDA-Public Use
  Company Number: US-PFIZER INC-2007017742

PATIENT
  Sex: Male
  Weight: 111.6 kg

DRUGS (4)
  1. GEODON [Suspect]
     Indication: SCHIZOPHRENIA, PARANOID TYPE
     Route: 048
     Dates: start: 20060927, end: 20070201
  2. ZOLOFT [Suspect]
  3. CLOZAPINE [Suspect]
     Dates: start: 20040101, end: 20060927
  4. ZYPREXA [Suspect]
     Indication: SCHIZOPHRENIA, PARANOID TYPE
     Dates: start: 20070227, end: 20070430

REACTIONS (15)
  - CONTUSION [None]
  - CONVULSION [None]
  - DISORIENTATION [None]
  - DRUG INEFFECTIVE [None]
  - HALLUCINATION, AUDITORY [None]
  - HEAT EXHAUSTION [None]
  - HYPONATRAEMIA [None]
  - MENTAL IMPAIRMENT [None]
  - NEGLECT OF PERSONAL APPEARANCE [None]
  - NEUROLEPTIC MALIGNANT SYNDROME [None]
  - PARANOIA [None]
  - RHABDOMYOLYSIS [None]
  - SOMNOLENCE [None]
  - SWELLING FACE [None]
  - WEIGHT DECREASED [None]
